FAERS Safety Report 7546568-8 (Version None)
Quarter: 2011Q2

REPORT INFORMATION
  Report Type: 
  Country: None (occurrence: None)
  Receive Date: 20110614
  Receipt Date: 20110607
  Transmission Date: 20111010
  Serious: Yes (Death)
  Sender: FDA-Public Use
  Company Number: JP-PFIZER INC-2011123054

PATIENT
  Age: 74 Year
  Sex: Male

DRUGS (7)
  1. CANDESARTAN CILEXETIL [Concomitant]
     Dosage: UNK
     Route: 048
     Dates: start: 20010801
  2. WARFARIN [Concomitant]
     Dosage: UNK
     Route: 048
     Dates: start: 20010801
  3. RABEPRAZOLE SODIUM [Concomitant]
     Dosage: UNK
     Route: 048
     Dates: start: 20010801
  4. SILDENAFIL CITRATE [Suspect]
     Dosage: 20 MG, 3X/DAY
     Route: 048
     Dates: start: 20080723
  5. CARVEDILOL [Concomitant]
     Dosage: UNK
     Route: 048
     Dates: start: 20010801
  6. BUFFERIN [Concomitant]
     Dosage: UNK
     Route: 048
     Dates: start: 20010801
  7. HALCION [Concomitant]

REACTIONS (1)
  - DEATH [None]
